FAERS Safety Report 19651801 (Version 1)
Quarter: 2021Q3

REPORT INFORMATION
  Report Type: Spontaneous
  Country: US (occurrence: US)
  Receive Date: 20210803
  Receipt Date: 20210803
  Transmission Date: 20211014
  Serious: Yes (Death)
  Sender: FDA-Public Use
  Company Number: None

PATIENT
  Sex: Female
  Weight: 82.08 kg

DRUGS (17)
  1. CYMBALTA [Concomitant]
     Active Substance: DULOXETINE HYDROCHLORIDE
  2. CLONIDINE. [Concomitant]
     Active Substance: CLONIDINE
  3. VITAMIN D [Concomitant]
     Active Substance: VITAMIN D NOS
  4. MAGIC MOUTHWASH [Concomitant]
     Active Substance: DIPHENHYDRAMINE HYDROCHLORIDE\LIDOCAINE HYDROCHLORIDE\NYSTATIN
  5. MACROBID [Concomitant]
     Active Substance: NITROFURANTOIN\NITROFURANTOIN MONOHYDRATE
  6. VITAMIN B12 [Concomitant]
     Active Substance: CYANOCOBALAMIN
  7. INDAPAMIDE. [Concomitant]
     Active Substance: INDAPAMIDE
  8. KLOR?CON M20 [Concomitant]
     Active Substance: POTASSIUM CHLORIDE
  9. PROCHLORPERAZINE. [Concomitant]
     Active Substance: PROCHLORPERAZINE
  10. ASPIRIN 81 [Concomitant]
     Active Substance: ASPIRIN
  11. METOPROLOL TARTRATE. [Concomitant]
     Active Substance: METOPROLOL TARTRATE
  12. ONDANSETRON [Concomitant]
     Active Substance: ONDANSETRON
  13. CAPECITABINE. [Suspect]
     Active Substance: CAPECITABINE
     Indication: BREAST CANCER FEMALE
     Route: 048
  14. LIDOCAINE?PRILOCAINE [Concomitant]
     Active Substance: LIDOCAINE\PRILOCAINE
  15. VITAMIN C [Concomitant]
     Active Substance: ASCORBIC ACID
  16. OMNIPAQUE [Concomitant]
     Active Substance: IOHEXOL
  17. CALCIUM 600 HIGH POTENCY [Concomitant]

REACTIONS (1)
  - Death [None]
